FAERS Safety Report 9050325 (Version 2)
Quarter: 2013Q2

REPORT INFORMATION
  Report Type: Spontaneous
  Country: DE (occurrence: DE)
  Receive Date: 20130205
  Receipt Date: 20130430
  Transmission Date: 20140414
  Serious: Yes (Other)
  Sender: FDA-Public Use
  Company Number: PHHY2013DE010327

PATIENT
  Sex: Female

DRUGS (3)
  1. CARBAMAZEPINE [Suspect]
     Dosage: UNK UKN, UNK
  2. VFEND [Interacting]
     Indication: ASPERGILLUS INFECTION
     Dosage: 2 DF, DAILY
  3. VFEND [Interacting]
     Dosage: 1 DF, DAILY

REACTIONS (2)
  - Bronchopulmonary aspergillosis [Unknown]
  - Drug interaction [Unknown]
